FAERS Safety Report 17056807 (Version 3)
Quarter: 2019Q4

REPORT INFORMATION
  Report Type: Spontaneous
  Country: US (occurrence: US)
  Receive Date: 20191121
  Receipt Date: 20191207
  Transmission Date: 20200122
  Serious: Yes (Other)
  Sender: FDA-Public Use
  Company Number: US-AUROBINDO-AUR-APL-2019-073333

PATIENT
  Age: 7 Decade
  Sex: Female

DRUGS (1)
  1. CAPECITABINE. [Suspect]
     Active Substance: CAPECITABINE
     Indication: BREAST CANCER METASTATIC
     Dosage: UNK (3.5 YEAR)
     Route: 065

REACTIONS (11)
  - Drug eruption [Unknown]
  - Epidermal necrosis [Unknown]
  - Palmar-plantar erythrodysaesthesia syndrome [Unknown]
  - Skin reaction [Unknown]
  - Rash [Unknown]
  - Skin plaque [Unknown]
  - Skin fissures [Unknown]
  - Oedema [Unknown]
  - Bloch-Sulzberger syndrome [Unknown]
  - Skin oedema [Unknown]
  - Lymphocytic infiltration [Unknown]
